FAERS Safety Report 14643764 (Version 2)
Quarter: 2020Q3

REPORT INFORMATION
  Report Type: Report from Study
  Country: CO (occurrence: CO)
  Receive Date: 20180315
  Receipt Date: 20200928
  Transmission Date: 20201102
  Serious: Yes (Death, Hospitalization)
  Sender: FDA-Public Use
  Company Number: CO-INCYTE CORPORATION-2018IN002219

PATIENT

DRUGS (1)
  1. JAKAVI [Suspect]
     Active Substance: RUXOLITINIB
     Indication: MYELOFIBROSIS
     Dosage: 20 MG, Q12H
     Route: 048

REACTIONS (10)
  - Speech disorder [Unknown]
  - Epinephrine decreased [Unknown]
  - Hypoaesthesia [Unknown]
  - Back pain [Unknown]
  - Blood glucose increased [Unknown]
  - Headache [Unknown]
  - Thrombosis [Unknown]
  - Hyperglycaemia [Unknown]
  - Diabetes mellitus [Unknown]
  - Death [Fatal]

NARRATIVE: CASE EVENT DATE: 20180228
